FAERS Safety Report 18885073 (Version 1)
Quarter: 2021Q1

REPORT INFORMATION
  Report Type: Spontaneous
  Country: US (occurrence: US)
  Receive Date: 20210212
  Receipt Date: 20210212
  Transmission Date: 20210420
  Serious: No
  Sender: FDA-Public Use
  Company Number: None

PATIENT
  Age: 83 Year
  Sex: Male
  Weight: 78 kg

DRUGS (12)
  1. CIPROFLOXACIN HCL [Concomitant]
     Active Substance: CIPROFLOXACIN HYDROCHLORIDE
  2. CYCLOPHOSPHAMIDE. [Suspect]
     Active Substance: CYCLOPHOSPHAMIDE
     Indication: ADULT T-CELL LYMPHOMA/LEUKAEMIA
     Route: 048
     Dates: start: 20210111
  3. DOCUSATE SODIUM. [Concomitant]
     Active Substance: DOCUSATE SODIUM
  4. METOPROLOL TARTRATE. [Concomitant]
     Active Substance: METOPROLOL TARTRATE
  5. CALCIUM + D3 [Concomitant]
     Active Substance: CALCIUM\CHOLECALCIFEROL
  6. MULTI VITAMIN [Concomitant]
     Active Substance: VITAMINS
  7. TORSEMIDE. [Concomitant]
     Active Substance: TORSEMIDE
  8. LATANOPROST. [Concomitant]
     Active Substance: LATANOPROST
  9. SENNA LAXATIVE [Concomitant]
     Active Substance: SENNOSIDES
  10. PROCHLORPERAZINE MALEATE. [Concomitant]
     Active Substance: PROCHLORPERAZINE MALEATE
  11. WARFARIN SODIUM. [Concomitant]
     Active Substance: WARFARIN SODIUM
  12. KLOR?CON M10 [Concomitant]
     Active Substance: POTASSIUM CHLORIDE

REACTIONS (1)
  - Urinary tract infection [None]

NARRATIVE: CASE EVENT DATE: 20210129
